FAERS Safety Report 13624765 (Version 1)
Quarter: 2017Q2

REPORT INFORMATION
  Report Type: Spontaneous
  Country: DE (occurrence: DE)
  Receive Date: 20170607
  Receipt Date: 20170607
  Transmission Date: 20170830
  Serious: Yes (Hospitalization)
  Sender: FDA-Public Use
  Company Number: DE-AUROBINDO-AUR-APL-2017-34987

PATIENT
  Age: 55 Year
  Sex: Female

DRUGS (9)
  1. VALPROATE [Suspect]
     Active Substance: VALPROIC ACID
     Indication: PRODUCT USED FOR UNKNOWN INDICATION
     Dosage: 1800 MG, DAILY
     Route: 048
     Dates: start: 2011, end: 20161212
  2. VALPROATE [Suspect]
     Active Substance: VALPROIC ACID
     Dosage: 1200 MG, DAILY
     Route: 048
     Dates: start: 20161220, end: 20170110
  3. OLANZAPINE. [Suspect]
     Active Substance: OLANZAPINE
     Indication: PRODUCT USED FOR UNKNOWN INDICATION
     Dosage: 15 MG, DAILY
     Route: 048
     Dates: start: 2016, end: 20170117
  4. ASENAPINA [Suspect]
     Active Substance: ASENAPINE
     Indication: PRODUCT USED FOR UNKNOWN INDICATION
     Dosage: 5 MG, ONCE A DAY
     Route: 048
     Dates: start: 2016, end: 20170117
  5. OLANZAPINE. [Suspect]
     Active Substance: OLANZAPINE
     Dosage: 10 MG, DAILY
     Route: 048
     Dates: start: 20170118, end: 20170121
  6. VALPROATE [Suspect]
     Active Substance: VALPROIC ACID
     Dosage: 1500 MG, DAILY
     Route: 048
     Dates: start: 20161213, end: 20161219
  7. VALPROATE [Suspect]
     Active Substance: VALPROIC ACID
     Dosage: 300 MG, DAILY
     Route: 048
     Dates: start: 20170119, end: 20170123
  8. ZYPADHERA [Suspect]
     Active Substance: OLANZAPINE PAMOATE
     Indication: PRODUCT USED FOR UNKNOWN INDICATION
     Dosage: 300 MG, TWO WEEKS
     Route: 030
     Dates: start: 2016, end: 20170112
  9. VALPROATE [Suspect]
     Active Substance: VALPROIC ACID
     Dosage: 600 MG, DAILY
     Route: 048
     Dates: start: 20170111, end: 20170118

REACTIONS (1)
  - Parkinsonism [Recovering/Resolving]

NARRATIVE: CASE EVENT DATE: 20161101
